FAERS Safety Report 5109007-2 (Version None)
Quarter: 2006Q3

REPORT INFORMATION
  Report Type: 
  Country: None (occurrence: None)
  Receive Date: 20060918
  Receipt Date: 20060829
  Transmission Date: 20061208
  Serious: Yes (Hospitalization)
  Sender: FDA-Public Use
  Company Number: US200608001582

PATIENT
  Age: 59 Year
  Sex: Male
  Weight: 85.3 kg

DRUGS (13)
  1. FORTEO [Suspect]
     Indication: OSTEOPOROSIS
     Dosage: 20 UG
     Dates: start: 20060501
  2. FORTEO PEN (FORTEO PEN) [Concomitant]
  3. NITROGLYCERIN [Concomitant]
  4. PREVACID [Concomitant]
  5. OSCAL 500-D (CALCIUM, COLECALCIFEROL) [Concomitant]
  6. REGLAN /USA/ (METOCLOPRAMIDE HYDROCHLORIDE) [Concomitant]
  7. COREG [Concomitant]
  8. ROCALTROL [Concomitant]
  9. SYNTHROID [Concomitant]
  10. PREDNISONE TAB [Concomitant]
  11. K-DUR 10 [Concomitant]
  12. MAG-OX (MAGNESIUM OXIDE) [Concomitant]
  13. DRISDOL [Concomitant]

REACTIONS (3)
  - BACK PAIN [None]
  - COLONIC OBSTRUCTION [None]
  - PHARMACEUTICAL PRODUCT COMPLAINT [None]
